FAERS Safety Report 6713963-6 (Version None)
Quarter: 2010Q2

REPORT INFORMATION
  Report Type: 
  Country: None (occurrence: None)
  Receive Date: 20100503
  Receipt Date: 20100421
  Transmission Date: 20101027
  Serious: Yes (Life-Threatening, Hospitalization)
  Sender: FDA-Public Use
  Company Number: 2010AP000836

PATIENT
  Age: 61 Year
  Sex: Female

DRUGS (23)
  1. RAMIPRIL [Suspect]
     Dosage: 10 MG; PO; QD
     Route: 048
     Dates: end: 20100323
  2. TRIMETHOPRIM [Suspect]
     Indication: URINARY TRACT INFECTION
     Dosage: 200 MG;PO;BID
     Route: 048
     Dates: start: 20100317, end: 20100320
  3. ACETYLSALICYLIC ACID [Concomitant]
  4. ATORVASTATIN [Concomitant]
  5. AMOLODIPINE [Concomitant]
  6. CITALOPRAM [Concomitant]
  7. CLONAZEPAM [Concomitant]
  8. PARACETAMOL [Concomitant]
  9. CODEINE SULFATE [Concomitant]
  10. AMYLASE [Concomitant]
  11. LIPASE [Concomitant]
  12. PANCREATIN [Concomitant]
  13. PROTEASE [Concomitant]
  14. DICLOFENAC [Concomitant]
  15. DIHYDROCODEINE BITARTRATE INJ [Concomitant]
  16. DOXAZOSIN MESYLATE [Concomitant]
  17. FERROUS FUMARATE [Concomitant]
  18. FLUTICASONE PROPIONATE [Concomitant]
  19. METFORMIN HCL [Suspect]
  20. INSULIN HUMAN [Concomitant]
  21. OMEPRAZOLE [Concomitant]
  22. SALBUTAMOL [Concomitant]
  23. AMLODIPINE [Concomitant]

REACTIONS (3)
  - DRUG INTERACTION [None]
  - HYPERKALAEMIA [None]
  - URINARY TRACT INFECTION [None]
